FAERS Safety Report 22266500 (Version 1)
Quarter: 2023Q2

REPORT INFORMATION
  Report Type: Spontaneous
  Country: US (occurrence: US)
  Receive Date: 20230428
  Receipt Date: 20230428
  Transmission Date: 20230721
  Serious: No
  Sender: FDA-Public Use
  Company Number: US-TEVA-2023-US-2876634

PATIENT
  Age: 71 Year
  Sex: Female

DRUGS (3)
  1. ESTRADIOL [Suspect]
     Active Substance: ESTRADIOL
     Indication: Postmenopause
     Route: 062
     Dates: start: 202303
  2. ESTRADIOL [Suspect]
     Active Substance: ESTRADIOL
     Indication: Hormone level abnormal
     Route: 048
     Dates: end: 2021
  3. TESTOSTERONE [Concomitant]
     Active Substance: TESTOSTERONE
     Indication: Product used for unknown indication

REACTIONS (9)
  - Blood oestrogen decreased [Unknown]
  - Hyperhidrosis [Unknown]
  - Depression [Unknown]
  - Hair disorder [Unknown]
  - Anxiety [Unknown]
  - Weight increased [Unknown]
  - Insomnia [Unknown]
  - Product adhesion issue [Unknown]
  - Drug ineffective [Unknown]

NARRATIVE: CASE EVENT DATE: 20210101
